FAERS Safety Report 5391072-9 (Version None)
Quarter: 2007Q3

REPORT INFORMATION
  Report Type: 
  Country: None (occurrence: None)
  Receive Date: 20070719
  Receipt Date: 20070711
  Transmission Date: 20080115
  Serious: Yes (Other)
  Sender: FDA-Public Use
  Company Number: JP-ELI_LILLY_AND_COMPANY-JP200707003828

PATIENT
  Age: 67 Year
  Sex: Female

DRUGS (4)
  1. GEMZAR [Suspect]
     Indication: PANCREATIC CARCINOMA NON-RESECTABLE
     Dosage: 1200 MG, OTHER
     Route: 042
  2. FLUOROURACIL [Concomitant]
     Indication: PANCREATIC CARCINOMA NON-RESECTABLE
     Dosage: UNK, OTHER
     Route: 065
  3. ISOVORIN [Concomitant]
     Indication: PANCREATIC CARCINOMA NON-RESECTABLE
     Dosage: UNK, OTHER
     Route: 065
  4. THERAPEUTIC RADIOPHARMACEUTICALS [Concomitant]
     Indication: PANCREATIC CARCINOMA NON-RESECTABLE

REACTIONS (5)
  - JAUNDICE [None]
  - MALAISE [None]
  - RASH [None]
  - STOMATITIS [None]
  - WHITE BLOOD CELL COUNT DECREASED [None]
